FAERS Safety Report 4502219-8 (Version None)
Quarter: 2004Q4

REPORT INFORMATION
  Report Type: 
  Country: None (occurrence: None)
  Receive Date: 20041116
  Receipt Date: 20041108
  Transmission Date: 20050328
  Serious: Yes (Other)
  Sender: FDA-Public Use
  Company Number: PHFR2004GB04171

PATIENT
  Age: 45 Year
  Sex: Male
  Weight: 40 kg

DRUGS (2)
  1. DICLOFENAC [Suspect]
     Indication: GOUT
     Dosage: 50 MG, TID
     Route: 048
     Dates: start: 20041011, end: 20041019
  2. SALBUTAMOL [Concomitant]
     Dosage: 2 PUFFS, PRN
     Route: 055
     Dates: start: 20040816

REACTIONS (3)
  - CONTUSION [None]
  - HAEMATOCHEZIA [None]
  - RECTAL HAEMORRHAGE [None]
